FAERS Safety Report 10483463 (Version 1)
Quarter: 2014Q3

REPORT INFORMATION
  Report Type: Spontaneous
  Country: US (occurrence: US)
  Receive Date: 20140930
  Receipt Date: 20140930
  Transmission Date: 20150326
  Serious: Yes (Other)
  Sender: FDA-Public Use
  Company Number: US-ASTRAZENECA-2014SE71910

PATIENT
  Age: 60 Year
  Sex: Male
  Weight: 95.3 kg

DRUGS (7)
  1. NEXIUM [Suspect]
     Active Substance: ESOMEPRAZOLE MAGNESIUM
     Indication: GASTROOESOPHAGEAL REFLUX DISEASE
     Route: 048
     Dates: start: 2004
  2. ASMANEX [Concomitant]
     Active Substance: MOMETASONE FUROATE
     Indication: ASTHMA
     Route: 055
     Dates: start: 2007
  3. PRILOSEC [Suspect]
     Active Substance: OMEPRAZOLE MAGNESIUM
     Indication: GASTROOESOPHAGEAL REFLUX DISEASE
     Route: 048
  4. RESCUE INHALER [Concomitant]
     Indication: RESPIRATORY DISORDER
  5. NEXIUM [Suspect]
     Active Substance: ESOMEPRAZOLE MAGNESIUM
     Indication: BARRETT^S OESOPHAGUS
     Route: 048
     Dates: start: 2004
  6. PULMICORT TURBUHALER [Suspect]
     Active Substance: BUDESONIDE
     Indication: ASTHMA
     Route: 055
     Dates: start: 2001, end: 2007
  7. MEDICATION FOR HIGH BLOOD PRESSURE [Concomitant]
     Active Substance: UNSPECIFIED INGREDIENT
     Indication: HYPERTENSION

REACTIONS (17)
  - Malignant melanoma [Recovered/Resolved]
  - Barrett^s oesophagus [Not Recovered/Not Resolved]
  - Choking [Recovering/Resolving]
  - Rash [Unknown]
  - Intentional product misuse [Not Recovered/Not Resolved]
  - Fungal infection [Unknown]
  - Bronchitis [Recovering/Resolving]
  - Cough [Recovering/Resolving]
  - Abdominal discomfort [Unknown]
  - Pulmonary fibrosis [Unknown]
  - Gastrooesophageal reflux disease [Not Recovered/Not Resolved]
  - Hernia [Unknown]
  - Dysphonia [Not Recovered/Not Resolved]
  - Aspiration [Not Recovered/Not Resolved]
  - Haemorrhage [Unknown]
  - Dyspnoea [Unknown]
  - Prostate cancer [Unknown]

NARRATIVE: CASE EVENT DATE: 2002
